FAERS Safety Report 9235626 (Version 1)
Quarter: 2013Q2

REPORT INFORMATION
  Report Type: Spontaneous
  Country: US (occurrence: None)
  Receive Date: 20130416
  Receipt Date: 20130416
  Transmission Date: 20140414
  Serious: Yes (Hospitalization)
  Sender: FDA-Public Use
  Company Number: None

PATIENT
  Age: 76 Year
  Sex: Female
  Weight: 52.7 kg

DRUGS (2)
  1. EVEROLIMUS [Suspect]
     Indication: LYMPHOMA
     Route: 048
     Dates: start: 20130211, end: 20130304
  2. BORTEZOMIB [Suspect]
     Indication: LYMPHOMA
     Dosage: 2 MG REDUCED TO 1.57MG FOR CYCLE? DAY 1,4,8 SQ
     Route: 058
     Dates: start: 20130211

REACTIONS (3)
  - Pyrexia [None]
  - Pleural effusion [None]
  - Pulmonary embolism [None]
